FAERS Safety Report 16661317 (Version 2)
Quarter: 2019Q3

REPORT INFORMATION
  Report Type: Spontaneous
  Country: US (occurrence: US)
  Receive Date: 20190802
  Receipt Date: 20190805
  Transmission Date: 20191004
  Serious: No
  Sender: FDA-Public Use
  Company Number: US-PFIZER INC-2019326060

PATIENT
  Age: 61 Year
  Sex: Female

DRUGS (3)
  1. ALPRAZOLAM. [Suspect]
     Active Substance: ALPRAZOLAM
     Indication: SLEEP DISORDER
     Dosage: 1 MG, 1X/DAY
     Route: 048
  2. VICODIN [Concomitant]
     Active Substance: ACETAMINOPHEN\HYDROCODONE BITARTRATE
     Indication: PAIN
     Dosage: 7.5 MG, UNK(ONE VICODIN OR TWO)
  3. MOTRIN [Concomitant]
     Active Substance: IBUPROFEN
     Dosage: 1 DF, 1X/DAY

REACTIONS (3)
  - Drug ineffective [Unknown]
  - Tachyphrenia [Unknown]
  - Insomnia [Unknown]
